FAERS Safety Report 20370689 (Version 3)
Quarter: 2022Q1

REPORT INFORMATION
  Report Type: Spontaneous
  Country: US (occurrence: US)
  Receive Date: 20220124
  Receipt Date: 20220321
  Transmission Date: 20220424
  Serious: No
  Sender: FDA-Public Use
  Company Number: US-ELI_LILLY_AND_COMPANY-US202201008740

PATIENT
  Sex: Female

DRUGS (6)
  1. CYMBALTA [Suspect]
     Active Substance: DULOXETINE HYDROCHLORIDE
     Indication: Product used for unknown indication
     Dosage: UNK UNK, UNKNOWN
     Route: 065
  2. IMBRUVICA [Suspect]
     Active Substance: IBRUTINIB
     Indication: Waldenstrom^s macroglobulinaemia
     Dosage: UNK UNK, UNKNOWN
     Route: 048
     Dates: end: 202112
  3. IMBRUVICA [Suspect]
     Active Substance: IBRUTINIB
     Dosage: UNK UNK, UNKNOWN
     Route: 048
     Dates: start: 202112
  4. IMBRUVICA [Suspect]
     Active Substance: IBRUTINIB
     Dosage: 560 MG, DAILY
     Route: 048
     Dates: start: 20210507
  5. RITUXAN [Concomitant]
     Active Substance: RITUXIMAB
     Indication: Product used for unknown indication
     Route: 042
  6. HEMOGENIC [Concomitant]
     Indication: Product used for unknown indication

REACTIONS (9)
  - Depression [Recovering/Resolving]
  - Skin fissures [Recovering/Resolving]
  - Dry skin [Recovering/Resolving]
  - Wound haemorrhage [Recovering/Resolving]
  - Neuropathy peripheral [Not Recovered/Not Resolved]
  - Blood immunoglobulin M increased [Recovering/Resolving]
  - Peripheral swelling [Unknown]
  - Skin ulcer [Unknown]
  - Transferrin saturation decreased [Unknown]
